FAERS Safety Report 7973898-8 (Version None)
Quarter: 2011Q4

REPORT INFORMATION
  Report Type: 
  Country: None (occurrence: None)
  Receive Date: 20111213
  Receipt Date: 20111202
  Transmission Date: 20120403
  Serious: Yes (Other)
  Sender: FDA-Public Use
  Company Number: US-BRISTOL-MYERS SQUIBB COMPANY-16269672

PATIENT

DRUGS (1)
  1. ORENCIA [Suspect]
     Route: 042

REACTIONS (1)
  - THROMBOSIS [None]
